FAERS Safety Report 6700173-1 (Version None)
Quarter: 2010Q2

REPORT INFORMATION
  Report Type: 
  Country: None (occurrence: None)
  Receive Date: 20100426
  Receipt Date: 20091006
  Transmission Date: 20101027
  Serious: Yes (Other)
  Sender: FDA-Public Use
  Company Number: WAES 0910USA00579

PATIENT
  Age: 32 Year
  Sex: Male
  Weight: 83.9154 kg

DRUGS (2)
  1. SINGULAIR [Suspect]
     Dosage: 10 MG/PO
     Route: 048
     Dates: start: 20080929
  2. ZYRTEC [Concomitant]

REACTIONS (1)
  - CONVULSION [None]
